FAERS Safety Report 16709878 (Version 2)
Quarter: 2019Q3

REPORT INFORMATION
  Report Type: Spontaneous
  Country: US (occurrence: US)
  Receive Date: 20190816
  Receipt Date: 20190830
  Transmission Date: 20191004
  Serious: No
  Sender: FDA-Public Use
  Company Number: US-PFIZER INC-2019310924

PATIENT
  Age: 43 Year
  Sex: Female

DRUGS (2)
  1. LYRICA [Suspect]
     Active Substance: PREGABALIN
     Dosage: 75 MG, 1X/DAY (AT BEDTIME)
     Route: 048
     Dates: start: 20190717
  2. LYRICA [Suspect]
     Active Substance: PREGABALIN
     Dosage: UNK, 1X/DAY (AT BEDTIME)

REACTIONS (4)
  - Frustration tolerance decreased [Unknown]
  - Lacrimal disorder [Not Recovered/Not Resolved]
  - Intentional product misuse [Unknown]
  - Emotional disorder [Unknown]
